FAERS Safety Report 6254064-3 (Version None)
Quarter: 2009Q2

REPORT INFORMATION
  Report Type: 
  Country: None (occurrence: None)
  Receive Date: 20090630
  Receipt Date: 20090630
  Transmission Date: 20091009
  Serious: Yes (Hospitalization)
  Sender: FDA-Public Use
  Company Number: None

PATIENT
  Age: 43 Year
  Sex: Female
  Weight: 61.2356 kg

DRUGS (1)
  1. RELISTOR [Suspect]
     Indication: CONSTIPATION
     Dosage: 3.5 ML 1X IM  ONE TIME
     Route: 030
     Dates: start: 20090619, end: 20090619

REACTIONS (7)
  - DEHYDRATION [None]
  - DIARRHOEA [None]
  - HAEMATEMESIS [None]
  - HEART RATE INCREASED [None]
  - MUSCLE SPASMS [None]
  - NAUSEA [None]
  - VOMITING [None]
